FAERS Safety Report 19244456 (Version 1)
Quarter: 2021Q2

REPORT INFORMATION
  Report Type: Spontaneous
  Country: US (occurrence: US)
  Receive Date: 20210512
  Receipt Date: 20210512
  Transmission Date: 20210717
  Serious: No
  Sender: FDA-Public Use
  Company Number: US-ASTRAZENECA-2021A353970

PATIENT
  Age: 63 Year
  Sex: Female

DRUGS (1)
  1. FARXIGA [Suspect]
     Active Substance: DAPAGLIFLOZIN PROPANEDIOL
     Indication: BLOOD GLUCAGON ABNORMAL
     Dosage: 5 MG AND THEN 2 WEEKS LATER, DOSE WAS TITRATED TO 10 MG BY MOUTH DAILY
     Route: 048

REACTIONS (1)
  - Headache [Recovering/Resolving]
